FAERS Safety Report 23070221 (Version 1)
Quarter: 2023Q4

REPORT INFORMATION
  Report Type: Report from Study
  Country: FR (occurrence: FR)
  Receive Date: 20231016
  Receipt Date: 20231016
  Transmission Date: 20240110
  Serious: Yes (Death, Hospitalization)
  Sender: FDA-Public Use
  Company Number: FR-SERVIER-S22008721

PATIENT
  Age: 74 Year
  Sex: Male
  Weight: 77 kg

DRUGS (8)
  1. ONIVYDE [Suspect]
     Active Substance: IRINOTECAN HYDROCHLORIDE
     Indication: Oesophageal squamous cell carcinoma metastatic
     Dosage: 133.3 MG
     Route: 042
     Dates: start: 20220817, end: 20220817
  2. FLUOROURACIL [Suspect]
     Active Substance: FLUOROURACIL
     Indication: Oesophageal squamous cell carcinoma metastatic
     Dosage: 4600 MG, QD
     Dates: start: 20220817, end: 20220819
  3. LEUCOVORIN [Suspect]
     Active Substance: LEUCOVORIN\LEUCOVORIN CALCIUM
     Indication: Oesophageal squamous cell carcinoma metastatic
     Dosage: 384 MG
     Dates: start: 20220817, end: 20220817
  4. ALLOPURINOL [Concomitant]
     Active Substance: ALLOPURINOL
     Indication: Hypertension
     Dosage: 200 MG, QD
  5. IMOVANE [Concomitant]
     Active Substance: ZOPICLONE
     Indication: Sleep disorder
     Dosage: 3.25 MG, QD
  6. ACETAMINOPHEN [Concomitant]
     Active Substance: ACETAMINOPHEN
     Indication: Pain
     Dosage: UNK
  7. OXYCODONE [Concomitant]
     Active Substance: OXYCODONE
     Indication: Pain
     Dosage: UNK
  8. CHOLECALCIFEROL [Concomitant]
     Active Substance: CHOLECALCIFEROL
     Indication: Vitamin D deficiency
     Dosage: UNK

REACTIONS (2)
  - Acute respiratory distress syndrome [Fatal]
  - Aspiration [Fatal]

NARRATIVE: CASE EVENT DATE: 20220819
